FAERS Safety Report 5691490-5 (Version None)
Quarter: 2008Q1

REPORT INFORMATION
  Report Type: 
  Country: None (occurrence: None)
  Receive Date: 20080331
  Receipt Date: 20080317
  Transmission Date: 20080703
  Serious: Yes (Death, Other)
  Sender: FDA-Public Use
  Company Number: MC200800155

PATIENT
  Age: 73 Year
  Sex: Female

DRUGS (1)
  1. ANGIOMAX [Suspect]
     Indication: CORONARY ARTERY BYPASS
     Dosage: 0.75 MG/KG, SINGLE, IV BOLUS
     Route: 040

REACTIONS (5)
  - CARDIAC ARREST [None]
  - HAEMODYNAMIC INSTABILITY [None]
  - LOW CARDIAC OUTPUT SYNDROME [None]
  - MYOCARDIAL INFARCTION [None]
  - POST PROCEDURAL COMPLICATION [None]
